FAERS Safety Report 23570232 (Version 4)
Quarter: 2024Q2

REPORT INFORMATION
  Report Type: Spontaneous
  Country: US (occurrence: US)
  Receive Date: 20240227
  Receipt Date: 20240527
  Transmission Date: 20240715
  Serious: No
  Sender: FDA-Public Use
  Company Number: US-BRISTOL-MYERS SQUIBB COMPANY-2024-029316

PATIENT
  Age: 69 Year
  Sex: Female

DRUGS (1)
  1. IDHIFA [Suspect]
     Active Substance: ENASIDENIB MESYLATE
     Indication: Neoplasm malignant
     Route: 048

REACTIONS (10)
  - Haemoglobin decreased [Unknown]
  - Nausea [Recovering/Resolving]
  - Inflammation [Recovered/Resolved]
  - Illness [Unknown]
  - Mobility decreased [Unknown]
  - Nerve injury [Unknown]
  - Decreased appetite [Unknown]
  - Weight decreased [Unknown]
  - Asthenia [Not Recovered/Not Resolved]
  - Hypersomnia [Unknown]
